FAERS Safety Report 8464128-1 (Version None)
Quarter: 2012Q2

REPORT INFORMATION
  Report Type: 
  Country: None (occurrence: None)
  Receive Date: 20120625
  Receipt Date: 20120615
  Transmission Date: 20120825
  Serious: Yes (Other)
  Sender: FDA-Public Use
  Company Number: US-VERTEX PHARMACEUTICALS INC.-AE-2012-009115

PATIENT
  Sex: Male

DRUGS (3)
  1. RIBAVIRIN [Concomitant]
     Indication: HEPATITIS C
     Dates: start: 20110920, end: 20120305
  2. PEGASYS [Concomitant]
     Indication: HEPATITIS C
     Dates: start: 20110920, end: 20120305
  3. INCIVEK [Suspect]
     Indication: HEPATITIS C
     Route: 048
     Dates: start: 20110920, end: 20111204

REACTIONS (10)
  - SUICIDAL IDEATION [None]
  - IRRITABILITY [None]
  - FATIGUE [None]
  - WEIGHT DECREASED [None]
  - ANGER [None]
  - PRURITUS [None]
  - EMOTIONAL DISORDER [None]
  - DIARRHOEA HAEMORRHAGIC [None]
  - ASTHENIA [None]
  - PROCTALGIA [None]
